FAERS Safety Report 11997574 (Version 1)
Quarter: 2016Q1

REPORT INFORMATION
  Report Type: Spontaneous
  Country: US (occurrence: None)
  Receive Date: 20160202
  Receipt Date: 20160202
  Transmission Date: 20160526
  Serious: Yes (Hospitalization)
  Sender: FDA-Public Use
  Company Number: None

PATIENT
  Sex: Male
  Weight: 66.86 kg

DRUGS (7)
  1. SOFOSBUVIR 400 MG [Suspect]
     Active Substance: SOFOSBUVIR
     Indication: HEPATITIS C
     Route: 048
     Dates: start: 20150720, end: 20160107
  2. LACTULOSE. [Concomitant]
     Active Substance: LACTULOSE
  3. DECLATASVIR 60 MG [Suspect]
     Active Substance: DACLATASVIR
     Indication: HEPATITIS C
     Route: 048
     Dates: start: 20150720, end: 20160107
  4. SPIRONOLACTONE. [Concomitant]
     Active Substance: SPIRONOLACTONE
  5. RIBAVIRIN 600 MG [Suspect]
     Active Substance: RIBAVIRIN
     Route: 048
     Dates: start: 2015, end: 20160107
  6. TORASEMID [Concomitant]
     Active Substance: TORSEMIDE
  7. PONIOPRAZOLE [Concomitant]

REACTIONS (1)
  - Upper gastrointestinal haemorrhage [None]

NARRATIVE: CASE EVENT DATE: 20151121
